FAERS Safety Report 6024851-5 (Version None)
Quarter: 2008Q4

REPORT INFORMATION
  Report Type: 
  Country: None (occurrence: None)
  Receive Date: 20081231
  Receipt Date: 20081223
  Transmission Date: 20090506
  Serious: Yes (Death)
  Sender: FDA-Public Use
  Company Number: US-TYCO HEALTHCARE/MALLINCKRODT-T200802165

PATIENT
  Sex: Male

DRUGS (2)
  1. METHADON HCL TAB [Suspect]
     Indication: PAIN
     Dosage: 10 MG, BID
     Dates: start: 20050401
  2. LORTAB [Suspect]
     Indication: DRUG USE FOR UNKNOWN INDICATION

REACTIONS (2)
  - ACCIDENTAL OVERDOSE [None]
  - DRUG TOXICITY [None]
